FAERS Safety Report 4583967-0 (Version None)
Quarter: 2005Q1

REPORT INFORMATION
  Report Type: 
  Country: None (occurrence: None)
  Receive Date: 20050216
  Receipt Date: 20050203
  Transmission Date: 20050727
  Serious: Yes (Other)
  Sender: FDA-Public Use
  Company Number: TN-JNJFOC-20050201401

PATIENT
  Age: 6 Year
  Sex: Male

DRUGS (1)
  1. PROPULSID [Suspect]
     Route: 049
     Dates: start: 20000101

REACTIONS (1)
  - ANGINA PECTORIS [None]
